FAERS Safety Report 9002054 (Version 3)
Quarter: 2013Q1

REPORT INFORMATION
  Report Type: Spontaneous
  Country: SE (occurrence: SE)
  Receive Date: 20130107
  Receipt Date: 20130220
  Transmission Date: 20140127
  Serious: Yes (Other)
  Sender: FDA-Public Use
  Company Number: SE-ASTRAZENECA-2013SE00145

PATIENT
  Age: 74 Year
  Sex: Male

DRUGS (2)
  1. BRILIQUE [Suspect]
     Indication: ARTERIAL RESTENOSIS
     Route: 048
     Dates: start: 20121127, end: 20121220
  2. PLAVIX [Concomitant]

REACTIONS (2)
  - Rash [Not Recovered/Not Resolved]
  - Pruritus [Not Recovered/Not Resolved]
